FAERS Safety Report 10480479 (Version 1)
Quarter: 2014Q3

REPORT INFORMATION
  Report Type: Spontaneous
  Country: CN (occurrence: CN)
  Receive Date: 20140929
  Receipt Date: 20140929
  Transmission Date: 20150326
  Serious: Yes (Hospitalization)
  Sender: FDA-Public Use
  Company Number: CN-JNJFOC-20140914296

PATIENT
  Age: 62 Year
  Sex: Female

DRUGS (6)
  1. SPORANOX [Suspect]
     Active Substance: ITRACONAZOLE\SODIUM CHLORIDE
     Indication: HISTOPLASMOSIS
     Route: 048
     Dates: start: 20130428, end: 20130429
  2. RABEPRAZOLE [Suspect]
     Active Substance: RABEPRAZOLE
     Indication: GASTROINTESTINAL DISORDER THERAPY
     Route: 065
  3. METHYLPREDNISOLONE [Suspect]
     Active Substance: METHYLPREDNISOLONE
     Indication: ANTIINFLAMMATORY THERAPY
     Route: 065
  4. SPORANOX [Suspect]
     Active Substance: ITRACONAZOLE\SODIUM CHLORIDE
     Indication: HISTOPLASMOSIS
     Route: 048
     Dates: start: 20130430, end: 20130509
  5. AMBROXOL [Suspect]
     Active Substance: AMBROXOL
     Indication: INCREASED UPPER AIRWAY SECRETION
     Route: 065
  6. SPORANOX [Suspect]
     Active Substance: ITRACONAZOLE\SODIUM CHLORIDE
     Indication: HISTOPLASMOSIS
     Route: 048
     Dates: start: 20130425, end: 20130427

REACTIONS (3)
  - Sputum purulent [Recovering/Resolving]
  - Genital erosion [Recovered/Resolved]
  - Vulvitis [Recovered/Resolved]

NARRATIVE: CASE EVENT DATE: 20130504
